FAERS Safety Report 21449190 (Version 5)
Quarter: 2022Q4

REPORT INFORMATION
  Report Type: Report from Study
  Country: US (occurrence: US)
  Receive Date: 20221013
  Receipt Date: 20221207
  Transmission Date: 20230112
  Serious: Yes (Other)
  Sender: FDA-Public Use
  Company Number: US-SAREPTA THERAPEUTICS INC.-SRP2022-002635

PATIENT
  Age: 7 Year
  Sex: Male
  Weight: 20.4 kg

DRUGS (4)
  1. ETEPLIRSEN [Suspect]
     Active Substance: ETEPLIRSEN
     Indication: Duchenne muscular dystrophy
     Dosage: 600 MILLIGRAM, SINGLE
     Route: 042
     Dates: start: 20221003
  2. ETEPLIRSEN [Suspect]
     Active Substance: ETEPLIRSEN
     Dosage: 600 MILLIGRAM, SINGLE
     Route: 042
     Dates: start: 20220927, end: 20220927
  3. PREDNISONE [Concomitant]
     Active Substance: PREDNISONE
     Indication: Duchenne muscular dystrophy
     Dosage: 15 MILLIGRAM, QD
     Route: 048
     Dates: start: 20220620
  4. FAMOTIDINE [Concomitant]
     Active Substance: FAMOTIDINE
     Indication: Gastrointestinal disorder prophylaxis
     Dosage: 20 MILLIGRAM, QD
     Route: 048
     Dates: start: 20220620

REACTIONS (2)
  - Anaphylactic reaction [Recovered/Resolved]
  - Flushing [Recovered/Resolved]

NARRATIVE: CASE EVENT DATE: 20220927
